FAERS Safety Report 20816531 (Version 1)
Quarter: 2022Q2

REPORT INFORMATION
  Report Type: Spontaneous
  Country: US (occurrence: US)
  Receive Date: 20220512
  Receipt Date: 20220512
  Transmission Date: 20220721
  Serious: Yes (Other)
  Sender: FDA-Public Use
  Company Number: US-BRISTOL-MYERS SQUIBB COMPANY-2022-030590

PATIENT
  Age: 64 Year
  Sex: Female

DRUGS (8)
  1. REVLIMID [Suspect]
     Active Substance: LENALIDOMIDE
     Indication: Plasma cell myeloma
     Dosage: DOSE : 15MG;     FREQ : ONCE DAILY
     Route: 048
     Dates: start: 2020, end: 202111
  2. ASPIRIN [Concomitant]
     Active Substance: ASPIRIN
     Indication: Product used for unknown indication
  3. LOSARTAN [Concomitant]
     Active Substance: LOSARTAN
     Indication: Blood pressure measurement
  4. DULOXETINE [Concomitant]
     Active Substance: DULOXETINE
     Indication: Depression
  5. DULOXETINE [Concomitant]
     Active Substance: DULOXETINE
     Indication: Pain
  6. GABAPENTIN [Concomitant]
     Active Substance: GABAPENTIN
     Indication: Neuropathy peripheral
  7. CINNAMON [CINNAMOMUM VERUM STEM BARK] [Concomitant]
     Indication: Product used for unknown indication
  8. VITAMINS NOS [Concomitant]
     Active Substance: VITAMINS
     Indication: Product used for unknown indication

REACTIONS (3)
  - Neuralgia [Unknown]
  - Neuropathy peripheral [Unknown]
  - Blood disorder [Unknown]

NARRATIVE: CASE EVENT DATE: 20210201
